FAERS Safety Report 5126550-0 (Version None)
Quarter: 2006Q4

REPORT INFORMATION
  Report Type: 
  Country: None (occurrence: None)
  Receive Date: 20061011
  Receipt Date: 20061011
  Transmission Date: 20070319
  Serious: Yes (Other)
  Sender: FDA-Public Use
  Company Number: None

PATIENT
  Age: 57 Year
  Sex: Female
  Weight: 58.9676 kg

DRUGS (2)
  1. TAXOTERE [Suspect]
     Indication: BREAST CANCER
     Dosage: 117 MG EVERY 3 WEEKS IV
     Route: 042
     Dates: start: 20060919, end: 20061010
  2. TAXOTERE [Suspect]

REACTIONS (2)
  - DYSPNOEA [None]
  - INFUSION RELATED REACTION [None]
